FAERS Safety Report 16994082 (Version 1)
Quarter: 2019Q4

REPORT INFORMATION
  Report Type: Spontaneous
  Country: JP (occurrence: JP)
  Receive Date: 20191105
  Receipt Date: 20191105
  Transmission Date: 20200122
  Serious: Yes (Other)
  Sender: FDA-Public Use
  Company Number: NVSC2019JP024269

PATIENT
  Age: 82 Year
  Sex: Female
  Weight: 35.5 kg

DRUGS (2)
  1. CARBOPLATIN. [Suspect]
     Active Substance: CARBOPLATIN
     Indication: MALIGNANT PERITONEAL NEOPLASM
     Dosage: 540 MG/M2, UNKNOWN
     Route: 065
  2. PACLITAXEL. [Suspect]
     Active Substance: PACLITAXEL
     Indication: MALIGNANT PERITONEAL NEOPLASM
     Dosage: 96 MG, UNKNOWN (80 MG/M2)
     Route: 065

REACTIONS (3)
  - Product use in unapproved indication [Unknown]
  - Neutrophil count decreased [Unknown]
  - Platelet count decreased [Unknown]
